FAERS Safety Report 7950718-9 (Version None)
Quarter: 2011Q4

REPORT INFORMATION
  Report Type: 
  Country: None (occurrence: None)
  Receive Date: 20111201
  Receipt Date: 20111118
  Transmission Date: 20120403
  Serious: Yes (Hospitalization)
  Sender: FDA-Public Use
  Company Number: US-RANBAXY-2011US-50627

PATIENT
  Age: 36 Month
  Sex: Male

DRUGS (1)
  1. FLUOXETINE [Suspect]
     Indication: PRODUCT USED FOR UNKNOWN INDICATION
     Dosage: 12 TABLETS OF 20 MG (12.6 MG/KG)
     Route: 048

REACTIONS (5)
  - ACCIDENTAL EXPOSURE [None]
  - INAPPROPRIATE ANTIDIURETIC HORMONE SECRETION [None]
  - MEDICATION ERROR [None]
  - APHASIA [None]
  - MUSCLE RIGIDITY [None]
